FAERS Safety Report 7937953-0 (Version None)
Quarter: 2011Q4

REPORT INFORMATION
  Report Type: 
  Country: None (occurrence: None)
  Receive Date: 20111123
  Receipt Date: 20111123
  Transmission Date: 20120403
  Serious: Yes (Hospitalization)
  Sender: FDA-Public Use
  Company Number: ES-ABBOTT-11P-144-0860285-00

PATIENT
  Sex: Female
  Weight: 105 kg

DRUGS (5)
  1. ASPIRIN [Concomitant]
     Indication: PROPHYLAXIS
  2. ATORVASTATIN [Concomitant]
     Indication: DYSLIPIDAEMIA
     Route: 048
  3. METFORMIN HCL [Concomitant]
     Indication: TYPE 2 DIABETES MELLITUS
     Route: 048
  4. HUMIRA [Suspect]
     Indication: PSORIASIS
     Dates: start: 20100511, end: 20110927
  5. ASPIRIN [Concomitant]
     Indication: METABOLIC SYNDROME
     Route: 048

REACTIONS (3)
  - RESPIRATORY DISTRESS [None]
  - BRONCHOPNEUMONIA [None]
  - SUBCUTANEOUS ABSCESS [None]
